FAERS Safety Report 5445715-1 (Version None)
Quarter: 2007Q3

REPORT INFORMATION
  Report Type: 
  Country: None (occurrence: None)
  Receive Date: 20070904
  Receipt Date: 20070827
  Transmission Date: 20080115
  Serious: Yes (Other)
  Sender: FDA-Public Use
  Company Number: 2006SP003562

PATIENT
  Age: 50 Year
  Sex: Female

DRUGS (2)
  1. PEG-INTRON [Suspect]
     Indication: HEPATITIS C
     Dosage: SC
     Route: 058
     Dates: start: 20060929
  2. RIBAVIRIN [Suspect]
     Indication: HEPATITIS C
     Dosage: PO
     Route: 048
     Dates: start: 20060929

REACTIONS (26)
  - ASTHENIA [None]
  - BLOOD POTASSIUM DECREASED [None]
  - COUGH [None]
  - DEHYDRATION [None]
  - DRY SKIN [None]
  - EAR PAIN [None]
  - EPISTAXIS [None]
  - FATIGUE [None]
  - FOOD CRAVING [None]
  - HEADACHE [None]
  - HYPERTENSION [None]
  - HYPOTENSION [None]
  - INJECTION SITE PRURITUS [None]
  - INSOMNIA [None]
  - IRRITABILITY [None]
  - LOSS OF CONSCIOUSNESS [None]
  - NASAL ULCER [None]
  - ORTHOSTATIC HYPOTENSION [None]
  - PAIN IN EXTREMITY [None]
  - PHARYNGOLARYNGEAL PAIN [None]
  - POLLAKIURIA [None]
  - PRESYNCOPE [None]
  - PRODUCTIVE COUGH [None]
  - RASH PRURITIC [None]
  - SLUGGISHNESS [None]
  - WEIGHT INCREASED [None]
